FAERS Safety Report 24464476 (Version 1)
Quarter: 2024Q4

REPORT INFORMATION
  Report Type: Report from Study
  Country: US (occurrence: US)
  Receive Date: 20241018
  Receipt Date: 20241018
  Transmission Date: 20250115
  Serious: No
  Sender: ROCHE
  Company Number: US-ROCHE-3503995

PATIENT
  Age: 58 Year
  Sex: Female
  Weight: 77.5 kg

DRUGS (8)
  1. XOLAIR [Suspect]
     Active Substance: OMALIZUMAB
     Indication: Asthma
     Dosage: LAST INJECTION RECEIVED ON 25/DEC/2023?150 MG/ML
     Route: 058
  2. XOLAIR [Suspect]
     Active Substance: OMALIZUMAB
  3. VENTOLIN HFA [Concomitant]
     Active Substance: ALBUTEROL SULFATE
     Dosage: 90 MCG INHALER MCG
  4. SINGULAIR [Concomitant]
     Active Substance: MONTELUKAST SODIUM
     Route: 048
  5. SYMBICORT [Concomitant]
     Active Substance: BUDESONIDE\FORMOTEROL FUMARATE DIHYDRATE
     Dosage: 2 PUFFS BY MOUTH 2 TIMES IN A DAY
  6. ALBUTEROL [Concomitant]
     Active Substance: ALBUTEROL
     Dosage: 2.5 MG/3 ML
  7. IPRATROPIUM [Concomitant]
     Active Substance: IPRATROPIUM
     Dosage: 0.06% SPRAY 42 MCG ?THREE TIMES DAILY.
  8. AUVI-Q [Concomitant]
     Active Substance: EPINEPHRINE
     Dosage: 0.3 ML

REACTIONS (2)
  - Off label use [Unknown]
  - No adverse event [Unknown]
